FAERS Safety Report 4927611-9 (Version None)
Quarter: 2006Q1

REPORT INFORMATION
  Report Type: 
  Country: None (occurrence: None)
  Receive Date: 20060228
  Receipt Date: 20050302
  Transmission Date: 20060701
  Serious: Yes (Death, Other)
  Sender: FDA-Public Use
  Company Number: US-MERCK-0503USA00616

PATIENT
  Age: 62 Year
  Sex: Female

DRUGS (1)
  1. VIOXX [Suspect]
     Indication: ARTHRITIS
     Route: 048

REACTIONS (3)
  - CEREBROVASCULAR ACCIDENT [None]
  - HYPERTENSION [None]
  - POLYTRAUMATISM [None]
